FAERS Safety Report 8836509 (Version 1)
Quarter: 2012Q4

REPORT INFORMATION
  Report Type: 
  Country: PT (occurrence: PT)
  Receive Date: 20121011
  Receipt Date: 20121011
  Transmission Date: 20130627
  Serious: Yes (Hospitalization)
  Sender: FDA-Public Use
  Company Number: PT-B.I. PHARMACEUTICALS,INC./RIDGEFIELD-2012-EU-05047PO

PATIENT
  Age: 54 Year
  Sex: Male

DRUGS (3)
  1. PRADAXA [Suspect]
     Indication: PROSTHESIS IMPLANTATION
     Dosage: 110 mg
     Dates: start: 20121001, end: 20121001
  2. PRADAXA [Suspect]
     Dosage: 220 mg
     Dates: start: 20121002, end: 20121002
  3. LOSARTAN [Concomitant]
     Indication: HYPERTENSION

REACTIONS (4)
  - Pulmonary embolism [Not Recovered/Not Resolved]
  - Peripheral embolism [Not Recovered/Not Resolved]
  - Pyrexia [Not Recovered/Not Resolved]
  - Dyspnoea [Not Recovered/Not Resolved]
